FAERS Safety Report 7677936-1 (Version None)
Quarter: 2011Q3

REPORT INFORMATION
  Report Type: 
  Country: None (occurrence: None)
  Receive Date: 20110811
  Receipt Date: 20110802
  Transmission Date: 20111222
  Serious: Yes (Other)
  Sender: FDA-Public Use
  Company Number: US-ACTELION-A-US2011-51513

PATIENT

DRUGS (1)
  1. TRACLEER [Suspect]
     Indication: PULMONARY ARTERIAL HYPERTENSION
     Dosage: UNK
     Route: 048
     Dates: start: 20110707, end: 20110709

REACTIONS (5)
  - VISUAL IMPAIRMENT [None]
  - OEDEMA [None]
  - BLINDNESS [None]
  - VISUAL BRIGHTNESS [None]
  - WEIGHT INCREASED [None]
